FAERS Safety Report 23260808 (Version 2)
Quarter: 2023Q4

REPORT INFORMATION
  Report Type: Report from Study
  Country: IE (occurrence: IE)
  Receive Date: 20231205
  Receipt Date: 20231211
  Transmission Date: 20240110
  Serious: Yes (Hospitalization)
  Sender: FDA-Public Use
  Company Number: IE-SA-SAC20231201000844

PATIENT
  Age: 73 Year
  Sex: Male

DRUGS (8)
  1. ISATUXIMAB [Suspect]
     Active Substance: ISATUXIMAB
     Indication: Plasma cell myeloma
     Dosage: 585 MG
     Route: 042
     Dates: start: 20230620, end: 20230620
  2. ISATUXIMAB [Suspect]
     Active Substance: ISATUXIMAB
     Dosage: 585 MG
     Route: 042
     Dates: start: 20231107, end: 20231107
  3. BORTEZOMIB [Suspect]
     Active Substance: BORTEZOMIB
     Indication: Plasma cell myeloma
     Dosage: 2.13 MG
     Route: 058
     Dates: start: 20230620, end: 20230620
  4. BORTEZOMIB [Suspect]
     Active Substance: BORTEZOMIB
     Dosage: 2.13 MG
     Route: 058
     Dates: start: 20231107, end: 20231107
  5. LENALIDOMIDE [Suspect]
     Active Substance: LENALIDOMIDE
     Indication: Plasma cell myeloma
     Dosage: 25 MG
     Route: 048
     Dates: start: 20230620, end: 20230620
  6. LENALIDOMIDE [Suspect]
     Active Substance: LENALIDOMIDE
     Dosage: 15 MG
     Route: 048
     Dates: start: 20231120, end: 20231120
  7. DEXAMETHASONE [Suspect]
     Active Substance: DEXAMETHASONE
     Indication: Plasma cell myeloma
     Dosage: 20 MG
     Dates: start: 20230620, end: 20230620
  8. DEXAMETHASONE [Suspect]
     Active Substance: DEXAMETHASONE
     Dosage: 20 MG (PO/IV)
     Dates: start: 20231128, end: 20231128

REACTIONS (2)
  - Clostridium difficile colitis [Recovered/Resolved]
  - Pseudomembranous colitis [Recovered/Resolved]

NARRATIVE: CASE EVENT DATE: 20231114
